FAERS Safety Report 12337042 (Version 1)
Quarter: 2016Q2

REPORT INFORMATION
  Report Type: Spontaneous
  Country: US (occurrence: US)
  Receive Date: 20160505
  Receipt Date: 20160505
  Transmission Date: 20160815
  Serious: No
  Sender: FDA-Public Use
  Company Number: US-WARNER CHILCOTT, LLC-1051483

PATIENT
  Age: 70 Year
  Sex: Female

DRUGS (2)
  1. ATELVIA [Suspect]
     Active Substance: RISEDRONATE SODIUM
     Route: 065
     Dates: end: 2014
  2. FEMARA [Concomitant]
     Active Substance: LETROZOLE
     Dates: end: 2014

REACTIONS (1)
  - Weight decreased [Not Recovered/Not Resolved]

NARRATIVE: CASE EVENT DATE: 201409
